FAERS Safety Report 18708844 (Version 1)
Quarter: 2021Q1

REPORT INFORMATION
  Report Type: Spontaneous
  Country: FR (occurrence: FR)
  Receive Date: 20210106
  Receipt Date: 20210106
  Transmission Date: 20210419
  Serious: Yes (Life-Threatening)
  Sender: FDA-Public Use
  Company Number: FR-TEVA-2020-FR-1864891

PATIENT
  Age: 54 Year
  Sex: Female

DRUGS (1)
  1. AMOXICILLINE [Suspect]
     Active Substance: AMOXICILLIN
     Indication: BRONCHITIS
     Dosage: UNIT DOSE : 1 GRAM
     Route: 048
     Dates: start: 20190212, end: 20190212

REACTIONS (5)
  - Dysphagia [Recovered/Resolved]
  - Urticaria [Recovered/Resolved]
  - Palpitations [Recovered/Resolved]
  - Laryngeal discomfort [Recovered/Resolved]
  - Pruritus [Recovered/Resolved]

NARRATIVE: CASE EVENT DATE: 20190212
